FAERS Safety Report 18278485 (Version 1)
Quarter: 2020Q3

REPORT INFORMATION
  Report Type: Spontaneous
  Country: US (occurrence: US)
  Receive Date: 20200917
  Receipt Date: 20200917
  Transmission Date: 20201103
  Serious: Yes (Other)
  Sender: FDA-Public Use
  Company Number: US-GLAXOSMITHKLINE-US2018AMR240745

PATIENT
  Sex: Female

DRUGS (1)
  1. ZEJULA [Suspect]
     Active Substance: NIRAPARIB
     Indication: PRODUCT USED FOR UNKNOWN INDICATION
     Dosage: UNK
     Dates: start: 20170501

REACTIONS (5)
  - Dyspnoea [Unknown]
  - Neuropathy peripheral [Unknown]
  - Fatigue [Unknown]
  - Ill-defined disorder [Unknown]
  - Hepatic lesion [Unknown]
